FAERS Safety Report 10072113 (Version 1)
Quarter: 2014Q2

REPORT INFORMATION
  Report Type: Spontaneous
  Country: US (occurrence: None)
  Receive Date: 20140410
  Receipt Date: 20140410
  Transmission Date: 20141212
  Serious: Yes (Other)
  Sender: FDA-Public Use
  Company Number: None

PATIENT
  Age: 60 Year
  Sex: Female
  Weight: 45.36 kg

DRUGS (2)
  1. MIRVASO [Suspect]
     Indication: ROSACEA
     Dosage: 5 PEA SIZED PORTIONS ONCE DAILY APPLIED TO A SURFACE, USUALLY THE SKIN
     Route: 061
     Dates: start: 20140313, end: 20140317
  2. MIRVASO [Suspect]
     Indication: ERYTHEMA
     Dosage: 5 PEA SIZED PORTIONS ONCE DAILY APPLIED TO A SURFACE, USUALLY THE SKIN
     Route: 061
     Dates: start: 20140313, end: 20140317

REACTIONS (4)
  - Rash erythematous [None]
  - Erythema [None]
  - Skin exfoliation [None]
  - Skin exfoliation [None]
